FAERS Safety Report 7806633-4 (Version None)
Quarter: 2011Q4

REPORT INFORMATION
  Report Type: 
  Country: None (occurrence: None)
  Receive Date: 20111011
  Receipt Date: 20111004
  Transmission Date: 20120403
  Serious: Yes (Other)
  Sender: FDA-Public Use
  Company Number: US-JNJFOC-20111002182

PATIENT
  Sex: Male

DRUGS (4)
  1. CLONIDINE [Concomitant]
     Route: 048
  2. INVEGA SUSTENNA [Suspect]
     Indication: SCHIZOPHRENIA
     Route: 030
  3. ZANTAC [Concomitant]
     Route: 048
  4. VITAMIN B COMPLEX CAP [Concomitant]
     Route: 048

REACTIONS (2)
  - HALLUCINATION, AUDITORY [None]
  - PRODUCT QUALITY ISSUE [None]
